FAERS Safety Report 26054728 (Version 1)
Quarter: 2025Q4

REPORT INFORMATION
  Report Type: Spontaneous
  Country: US (occurrence: None)
  Receive Date: 20251117
  Receipt Date: 20251117
  Transmission Date: 20260117
  Serious: Yes (Hospitalization)
  Sender: FDA-CTU
  Company Number: None

PATIENT
  Sex: Male

DRUGS (4)
  1. VYNDAMAX [Suspect]
     Active Substance: TAFAMIDIS
     Indication: Amyloidosis
     Dates: start: 20251024
  2. BUMETANIDE TAB 1 MG [Concomitant]
  3. ELIQUIS [Concomitant]
     Active Substance: APIXABAN
  4. TELMISARTAN TAB 40MG [Concomitant]

REACTIONS (4)
  - Fluid retention [None]
  - Swelling [None]
  - Peripheral swelling [None]
  - Peripheral swelling [None]
